FAERS Safety Report 20965531 (Version 1)
Quarter: 2022Q2

REPORT INFORMATION
  Report Type: Spontaneous
  Country: US (occurrence: US)
  Receive Date: 20220616
  Receipt Date: 20220616
  Transmission Date: 20220720
  Serious: No
  Sender: FDA-Public Use
  Company Number: US-TEVA-2022-US-2045009

PATIENT
  Sex: Male

DRUGS (1)
  1. METRONIDAZOLE [Suspect]
     Active Substance: METRONIDAZOLE
     Dosage: 1000 MILLIGRAM DAILY;
     Route: 065
     Dates: end: 20220606

REACTIONS (7)
  - Dysgeusia [Unknown]
  - Product taste abnormal [Unknown]
  - Product solubility abnormal [Unknown]
  - Feeling abnormal [Unknown]
  - Nausea [Unknown]
  - Taste disorder [Unknown]
  - Pain [Unknown]

NARRATIVE: CASE EVENT DATE: 20220101
